FAERS Safety Report 5188872-7 (Version None)
Quarter: 2006Q4

REPORT INFORMATION
  Report Type: 
  Country: None (occurrence: None)
  Receive Date: 20061221
  Receipt Date: 20061015
  Transmission Date: 20070319
  Serious: No
  Sender: FDA-Public Use
  Company Number: US-AMGEN-US197019

PATIENT
  Sex: Female

DRUGS (2)
  1. ENBREL [Suspect]
     Indication: JUVENILE ARTHRITIS
     Route: 058
     Dates: start: 20060602
  2. METHOTREXATE [Concomitant]
     Dates: start: 20060602

REACTIONS (3)
  - COUGH [None]
  - PYREXIA [None]
  - RHINORRHOEA [None]
